FAERS Safety Report 7159022-2 (Version None)
Quarter: 2010Q4

REPORT INFORMATION
  Report Type: 
  Country: None (occurrence: None)
  Receive Date: 20101214
  Receipt Date: 20100722
  Transmission Date: 20110411
  Serious: No
  Sender: FDA-Public Use
  Company Number: AT-ASTRAZENECA-2010SE34286

PATIENT
  Age: 70 Year
  Sex: Male
  Weight: 72.6 kg

DRUGS (1)
  1. CRESTOR [Suspect]
     Indication: HYPERCHOLESTEROLAEMIA
     Route: 048
     Dates: start: 20091101, end: 20100121

REACTIONS (2)
  - DRUG DOSE OMISSION [None]
  - MUSCULOSKELETAL PAIN [None]
